FAERS Safety Report 4648859-7 (Version None)
Quarter: 2005Q2

REPORT INFORMATION
  Report Type: 
  Country: None (occurrence: None)
  Receive Date: 20050427
  Receipt Date: 20050411
  Transmission Date: 20051028
  Serious: Yes (Hospitalization)
  Sender: FDA-Public Use
  Company Number: USA050394055

PATIENT
  Age: 69 Year
  Sex: Female

DRUGS (6)
  1. FORTEO [Suspect]
     Indication: OSTEOPOROSIS
     Dosage: 20 UG DAY
     Dates: start: 20040801
  2. ESTROGENS CONJUGATED [Concomitant]
  3. PREDNISONE [Concomitant]
  4. VITAMIN D [Concomitant]
  5. CALCIUM GLUCONATE [Concomitant]
  6. FLUTICASONE W/SALMETEROL [Concomitant]

REACTIONS (4)
  - BACK PAIN [None]
  - CHRONIC OBSTRUCTIVE AIRWAYS DISEASE EXACERBATED [None]
  - SPINAL COMPRESSION FRACTURE [None]
  - SPINAL FRACTURE [None]
